FAERS Safety Report 9887494 (Version 1)
Quarter: 2014Q1

REPORT INFORMATION
  Report Type: Spontaneous
  Country: AU (occurrence: None)
  Receive Date: 20140206
  Receipt Date: 20140206
  Transmission Date: 20141002
  Serious: Yes (Life-Threatening)
  Sender: FDA-Public Use
  Company Number: 2014000019

PATIENT
  Age: 99 Year
  Sex: Female

DRUGS (5)
  1. ACEON (PERINDOPRIL ERBUMINE) TABLET, 2MG [Suspect]
     Indication: PRODUCT USED FOR UNKNOWN INDICATION
     Route: 048
     Dates: start: 20121115
  2. NAPHAZOLINE [Suspect]
     Indication: PRODUCT USED FOR UNKNOWN INDICATION
     Route: 047
     Dates: start: 20130926, end: 20131027
  3. PARACETAMOL (PARACETAMOL) [Concomitant]
  4. PLAVIX (CLOPIDOGREL SULFATE) [Concomitant]
  5. RISPERIDONE (RISPERIDONE) [Concomitant]

REACTIONS (4)
  - Dysphagia [None]
  - Speech disorder [None]
  - Swollen tongue [None]
  - Local swelling [None]
